FAERS Safety Report 5265832-9 (Version None)
Quarter: 2007Q1

REPORT INFORMATION
  Report Type: 
  Country: None (occurrence: None)
  Receive Date: 20070312
  Receipt Date: 20070312
  Transmission Date: 20070707
  Serious: Yes (Other)
  Sender: FDA-Public Use
  Company Number: None

PATIENT
  Age: 59 Year
  Sex: Female
  Weight: 81.6475 kg

DRUGS (2)
  1. LEVAQUIN [Suspect]
     Indication: KIDNEY INFECTION
     Dosage: 500 MG DAILY PO
     Route: 048
     Dates: start: 20050728, end: 20050810
  2. CIPRO [Suspect]
     Dosage: 500 MG BID PO
     Route: 048

REACTIONS (3)
  - PAIN IN EXTREMITY [None]
  - TENDON RUPTURE [None]
  - TENDONITIS [None]
